FAERS Safety Report 4428759-8 (Version None)
Quarter: 2004Q3

REPORT INFORMATION
  Report Type: 
  Country: None (occurrence: None)
  Receive Date: 20040818
  Receipt Date: 20040426
  Transmission Date: 20050211
  Serious: Yes (Other)
  Sender: FDA-Public Use
  Company Number: US-BRISTOL-MYERS SQUIBB COMPANY-12574356

PATIENT
  Age: 82 Year
  Sex: Male

DRUGS (3)
  1. TEQUIN [Suspect]
     Indication: BRONCHITIS CHRONIC
     Route: 048
  2. TEQUIN [Suspect]
     Indication: CHRONIC OBSTRUCTIVE AIRWAYS DISEASE EXACERBATED
     Route: 048
  3. PREDNISONE [Concomitant]

REACTIONS (1)
  - CLOSTRIDIUM COLITIS [None]
